FAERS Safety Report 7725671-3 (Version None)
Quarter: 2011Q3

REPORT INFORMATION
  Report Type: 
  Country: None (occurrence: None)
  Receive Date: 20110902
  Receipt Date: 20110823
  Transmission Date: 20111222
  Serious: Yes (Hospitalization)
  Sender: FDA-Public Use
  Company Number: PHEH2011US02846

PATIENT
  Sex: Female

DRUGS (2)
  1. EXELON [Suspect]
     Dosage: 3 DF, ONCE/SINGLE
     Route: 062
  2. EXELON [Suspect]
     Dosage: UNK UKN, UNK
     Route: 062

REACTIONS (3)
  - WRONG TECHNIQUE IN DRUG USAGE PROCESS [None]
  - NAUSEA [None]
  - MALAISE [None]
